FAERS Safety Report 7134444-4 (Version None)
Quarter: 2010Q4

REPORT INFORMATION
  Report Type: 
  Country: None (occurrence: None)
  Receive Date: 20101203
  Receipt Date: 20101202
  Transmission Date: 20110411
  Serious: Yes (Death, Other)
  Sender: FDA-Public Use
  Company Number: PHHY2010JP78216

PATIENT
  Age: 68 Year
  Sex: Male

DRUGS (7)
  1. DIOVAN [Suspect]
     Indication: HYPERTENSION
     Dosage: 160MG DAILY
     Route: 048
  2. ARTIST [Concomitant]
     Dosage: 10MG
     Route: 048
  3. ASPIRIN [Concomitant]
     Dosage: 100MG
     Route: 048
  4. MUCOSTA [Concomitant]
     Dosage: 200MG
     Route: 048
  5. MAGLAX [Concomitant]
     Dosage: 660MG
     Route: 048
  6. CRESTOR [Concomitant]
     Dosage: 2.5MG
     Route: 048
  7. EPADEL [Concomitant]
     Dosage: 1200MG
     Route: 048

REACTIONS (7)
  - BRAIN CONTUSION [None]
  - CARDIO-RESPIRATORY ARREST [None]
  - COMA [None]
  - FALL [None]
  - HAEMORRHAGE [None]
  - MYOCARDIAL INFARCTION [None]
  - SWELLING [None]
